FAERS Safety Report 24008795 (Version 2)
Quarter: 2024Q3

REPORT INFORMATION
  Report Type: Spontaneous
  Country: JP (occurrence: JP)
  Receive Date: 20240625
  Receipt Date: 20240722
  Transmission Date: 20241016
  Serious: Yes (Hospitalization)
  Sender: REGENERON
  Company Number: JP-BAYER-2024A090240

PATIENT
  Age: 80 Year
  Sex: Male

DRUGS (1)
  1. EYLEA HD [Suspect]
     Active Substance: AFLIBERCEPT
     Indication: Neovascular age-related macular degeneration
     Dosage: 8 MG, LEFT EYE, 114.3 MG/ML, SOLUTION FOR INJECTION
     Route: 031
     Dates: start: 20240520

REACTIONS (3)
  - Vitreous opacities [Recovering/Resolving]
  - Visual acuity reduced [Unknown]
  - Eye pain [Unknown]

NARRATIVE: CASE EVENT DATE: 20240527
